FAERS Safety Report 5612162-9 (Version None)
Quarter: 2008Q1

REPORT INFORMATION
  Report Type: 
  Country: None (occurrence: None)
  Receive Date: 20080131
  Receipt Date: 20080131
  Transmission Date: 20080703
  Serious: Yes (Hospitalization)
  Sender: FDA-Public Use
  Company Number: None

PATIENT
  Age: 83 Year
  Sex: Male
  Weight: 113.1 kg

DRUGS (3)
  1. COUMADIN [Suspect]
     Indication: DEEP VEIN THROMBOSIS
     Dosage: COUMADIN 10MG  QD  PO
     Route: 048
  2. COUMADIN [Suspect]
     Indication: PULMONARY EMBOLISM
     Dosage: COUMADIN 10MG  QD  PO
     Route: 048
  3. COUMADIN [Suspect]
     Dosage: COUMADIN  5MG  QD  PO
     Route: 048

REACTIONS (1)
  - RECTAL HAEMORRHAGE [None]
